FAERS Safety Report 4429184-6 (Version None)
Quarter: 2004Q3

REPORT INFORMATION
  Report Type: 
  Country: None (occurrence: None)
  Receive Date: 20040726
  Receipt Date: 20040407
  Transmission Date: 20050211
  Serious: No
  Sender: FDA-Public Use
  Company Number: USA040464440

PATIENT
  Age: 54 Year
  Sex: Female

DRUGS (3)
  1. FORTEO [Suspect]
     Indication: OSTEOPOROSIS
     Dosage: 20 UG/ 1 DAY
     Dates: start: 20040331, end: 20040405
  2. SYNTHROID [Concomitant]
  3. VIVELLE-DOT [Concomitant]

REACTIONS (4)
  - EYE IRRITATION [None]
  - EYE REDNESS [None]
  - KERATOCONJUNCTIVITIS SICCA [None]
  - VISION BLURRED [None]
